FAERS Safety Report 11593975 (Version 1)
Quarter: 2015Q4

REPORT INFORMATION
  Report Type: Spontaneous
  Country: US (occurrence: US)
  Receive Date: 20151005
  Receipt Date: 20151005
  Transmission Date: 20160304
  Serious: Yes (Hospitalization, Other)
  Sender: FDA-Public Use
  Company Number: US-FERRINGPH-2015FE00966

PATIENT

DRUGS (5)
  1. PRENATAL VITAMINS [Concomitant]
     Active Substance: VITAMINS
     Indication: PREGNANCY
     Dosage: 1 UNK, 1 TIME DAILY
     Route: 048
     Dates: start: 201501
  2. LOVENOX [Concomitant]
     Active Substance: ENOXAPARIN SODIUM
     Indication: METHYLENETETRAHYDROFOLATE REDUCTASE DEFICIENCY
     Dosage: 40 MG, 1 TIME DAILY
     Route: 058
     Dates: start: 201501
  3. METFORMIN [Concomitant]
     Active Substance: METFORMIN HYDROCHLORIDE
     Indication: POLYCYSTIC OVARIES
     Dosage: 750 UNK, 2 TIMES DAILY
     Dates: start: 201501
  4. IMURAN [Suspect]
     Active Substance: AZATHIOPRINE
  5. ENDOMETRIN [Suspect]
     Active Substance: PROGESTERONE
     Indication: ASSISTED FERTILISATION
     Dosage: 100 MG, 3 TIMES DAILY
     Route: 067
     Dates: start: 20150121

REACTIONS (3)
  - Ovarian hyperstimulation syndrome [Recovered/Resolved]
  - Jaundice [Recovered/Resolved]
  - Blighted ovum [Recovered/Resolved]

NARRATIVE: CASE EVENT DATE: 201502
